FAERS Safety Report 25091294 (Version 1)
Quarter: 2025Q1

REPORT INFORMATION
  Report Type: Spontaneous
  Country: US (occurrence: US)
  Receive Date: 20250318
  Receipt Date: 20250318
  Transmission Date: 20250408
  Serious: No
  Sender: MERCK SHARP & DOHME LLC
  Company Number: US-009507513-2263824

PATIENT
  Sex: Female
  Weight: 87.5 kg

DRUGS (21)
  1. WINREVAIR [Suspect]
     Active Substance: SOTATERCEPT-CSRK
  2. WINREVAIR [Suspect]
     Active Substance: SOTATERCEPT-CSRK
  3. WINREVAIR [Suspect]
     Active Substance: SOTATERCEPT-CSRK
  4. WINREVAIR [Suspect]
     Active Substance: SOTATERCEPT-CSRK
  5. TYVASO [Suspect]
     Active Substance: TREPROSTINIL
     Indication: Pulmonary arterial hypertension
     Dosage: 66 UG (11 BREATHS), FOUR TIMES A DAY (QID). CONCENTRATION: 0.6 MG/ML
     Route: 055
     Dates: start: 20240223
  6. CLINDAMYCIN HYDROCHLORIDE [Concomitant]
     Active Substance: CLINDAMYCIN HYDROCHLORIDE
  7. JARDIANCE [Concomitant]
     Active Substance: EMPAGLIFLOZIN
  8. ALLOPURINOL [Concomitant]
     Active Substance: ALLOPURINOL
  9. TADALAFIL [Concomitant]
     Active Substance: TADALAFIL
  10. ASPIRIN [Concomitant]
     Active Substance: ASPIRIN
  11. TYLENOL ARTHRITIS PAIN [Concomitant]
     Active Substance: ACETAMINOPHEN
  12. BIOTIN [Concomitant]
     Active Substance: BIOTIN
  13. VITAMINS [Concomitant]
     Active Substance: VITAMINS
  14. SPIRONOLACTONE [Concomitant]
     Active Substance: SPIRONOLACTONE
  15. OXYGEN [Concomitant]
     Active Substance: OXYGEN
  16. VITAMINS [Concomitant]
     Active Substance: VITAMINS
  17. TORSEMIDE [Concomitant]
     Active Substance: TORSEMIDE
  18. VITAMIN D3 [Concomitant]
     Active Substance: CHOLECALCIFEROL
  19. FERROUS SULFATE [Concomitant]
     Active Substance: FERROUS SULFATE
  20. DICLOFENAC SODIUM [Concomitant]
     Active Substance: DICLOFENAC SODIUM
  21. OMEPRAZOLE [Concomitant]
     Active Substance: OMEPRAZOLE

REACTIONS (2)
  - Fear of injection [Unknown]
  - Device difficult to use [Unknown]
